FAERS Safety Report 26048093 (Version 1)
Quarter: 2025Q4

REPORT INFORMATION
  Report Type: Spontaneous
  Country: EU (occurrence: EU)
  Receive Date: 20251114
  Receipt Date: 20251114
  Transmission Date: 20260119
  Serious: Yes (Other)
  Sender: SANDOZ
  Company Number: None

PATIENT
  Age: 47 Year
  Sex: Female
  Weight: 47 kg

DRUGS (7)
  1. FILGRASTIM [Suspect]
     Active Substance: FILGRASTIM
     Indication: Neutropenia
     Dosage: 30 10*6.[IU]
     Route: 058
     Dates: start: 20250925, end: 20251026
  2. FILGRASTIM [Suspect]
     Active Substance: FILGRASTIM
     Dosage: 30 10*6.[IU]
     Route: 058
     Dates: start: 20251008, end: 20251010
  3. FILGRASTIM [Suspect]
     Active Substance: FILGRASTIM
     Dosage: 30 10*6.IU
     Route: 058
     Dates: start: 20251002, end: 20251002
  4. THIAMINE HYDROCHLORIDE [Concomitant]
     Active Substance: THIAMINE HYDROCHLORIDE
     Indication: Product used for unknown indication
     Dosage: 100 MG, Q24H (TAKEN ON TREATMENT DAYS)
     Route: 048
  5. IFOSFAMIDE [Concomitant]
     Active Substance: IFOSFAMIDE
     Indication: Product used for unknown indication
     Dosage: HIGH-DOSE IFOSFAMIDE 1 G/M?/DAY ON DAYS 1?14 EVERY 28 DAYS; LAST CYCLE WITH A 30% DOSAGE REDUCTION D
     Route: 042
     Dates: start: 20250507, end: 20251008
  6. OLANZAPINE [Concomitant]
     Active Substance: OLANZAPINE
     Indication: Product used for unknown indication
     Dosage: 2.5 MG, Q24H (THE PATIENT TAKES UROGYM, 1 SACHET TWICE DAILY)
     Route: 048
  7. OMEPRAZOLE [Concomitant]
     Active Substance: OMEPRAZOLE
     Indication: Product used for unknown indication
     Dosage: 20 MG, Q24H (1 TABLET WHILE FASTING)
     Route: 048

REACTIONS (2)
  - Neutropenia [Not Recovered/Not Resolved]
  - Therapy non-responder [Not Recovered/Not Resolved]

NARRATIVE: CASE EVENT DATE: 20251002
